FAERS Safety Report 11781203 (Version 2)
Quarter: 2015Q4

REPORT INFORMATION
  Report Type: Spontaneous
  Country: US (occurrence: US)
  Receive Date: 20151126
  Receipt Date: 20151209
  Transmission Date: 20160305
  Serious: No
  Sender: FDA-Public Use
  Company Number: US-PFIZER INC-2015411271

PATIENT
  Age: 60 Year
  Sex: Male
  Weight: 78 kg

DRUGS (3)
  1. DEPO-TESTOSTERONE [Suspect]
     Active Substance: TESTOSTERONE CYPIONATE
     Indication: BLOOD TESTOSTERONE DECREASED
     Dosage: 0.5 ML, INJECTION, EVERY OTHER WEEK
     Dates: start: 20150128
  2. LIPITOR [Concomitant]
     Active Substance: ATORVASTATIN CALCIUM
     Indication: BLOOD CHOLESTEROL ABNORMAL
     Dosage: 40 MG, 1X/DAY
     Route: 048
  3. FLOMAX [Concomitant]
     Active Substance: TAMSULOSIN HYDROCHLORIDE
     Dosage: 0.8 MG, UNK

REACTIONS (2)
  - Irritability [Unknown]
  - Blood testosterone increased [Unknown]

NARRATIVE: CASE EVENT DATE: 2015
